FAERS Safety Report 6879690-X (Version None)
Quarter: 2010Q3

REPORT INFORMATION
  Report Type: 
  Country: None (occurrence: None)
  Receive Date: 20100728
  Receipt Date: 20100714
  Transmission Date: 20110219
  Serious: Yes (Hospitalization)
  Sender: FDA-Public Use
  Company Number: US-ELI_LILLY_AND_COMPANY-US201007004337

PATIENT
  Sex: Female

DRUGS (22)
  1. FORTEO [Suspect]
     Dosage: 20 UG, DAILY (1/D)
     Dates: start: 20100401
  2. FORTEO [Suspect]
     Dosage: 20 UG, DAILY (1/D)
  3. ENABLEX                            /01760402/ [Concomitant]
  4. WARFARIN [Concomitant]
  5. DIOVAN [Concomitant]
  6. NEURONTIN [Concomitant]
  7. PRILOSEC [Concomitant]
  8. TOPAMAX [Concomitant]
  9. POTASSIUM [Concomitant]
  10. CARDIZEM CD [Concomitant]
  11. SINGULAIR [Concomitant]
  12. ADVAIR DISKUS 100/50 [Concomitant]
  13. VITAMIN B-12 [Concomitant]
  14. FIORICET W/ CODEINE [Concomitant]
  15. IMITREX [Concomitant]
  16. PHENERGAN [Concomitant]
  17. SOMA [Concomitant]
  18. BENADRYL [Concomitant]
  19. CARAFATE [Concomitant]
  20. REPLIVA [Concomitant]
  21. PROAIR HFA [Concomitant]
  22. ALBUTEROL [Concomitant]

REACTIONS (7)
  - ANAEMIA [None]
  - BLOOD TEST ABNORMAL [None]
  - FATIGUE [None]
  - FOOD CRAVING [None]
  - MIGRAINE [None]
  - PYREXIA [None]
  - STAPHYLOCOCCAL INFECTION [None]
